FAERS Safety Report 7692636-X (Version None)
Quarter: 2011Q3

REPORT INFORMATION
  Report Type: 
  Country: None (occurrence: None)
  Receive Date: 20110819
  Receipt Date: 20110811
  Transmission Date: 20111222
  Serious: Yes (Hospitalization)
  Sender: FDA-Public Use
  Company Number: FR-BRISTOL-MYERS SQUIBB COMPANY-15973316

PATIENT
  Age: 66 Year
  Sex: Male

DRUGS (9)
  1. ALFUZOSIN HCL [Concomitant]
  2. NEXIUM [Concomitant]
  3. FORLAX [Concomitant]
  4. SUTENT [Suspect]
     Indication: RENAL CANCER METASTATIC
     Route: 040
     Dates: start: 20110623, end: 20110721
  5. LANTUS [Concomitant]
  6. ZOLPIDEM [Concomitant]
  7. GLUCOPHAGE [Suspect]
     Indication: DIABETES MELLITUS
     Route: 048
     Dates: start: 20100101, end: 20110720
  8. CRESTOR [Suspect]
     Indication: DYSLIPIDAEMIA
     Dosage: FORMULATION:TABS
     Route: 048
     Dates: end: 20110720
  9. CALCIPARINE [Concomitant]

REACTIONS (2)
  - THROMBOCYTOPENIA [None]
  - NEUTROPENIA [None]
